FAERS Safety Report 5240265-X (Version None)
Quarter: 2007Q1

REPORT INFORMATION
  Report Type: 
  Country: None (occurrence: None)
  Receive Date: 20070219
  Receipt Date: 20070208
  Transmission Date: 20070707
  Serious: Yes (Hospitalization, Other)
  Sender: FDA-Public Use
  Company Number: CH-ELI_LILLY_AND_COMPANY-CH200610002212

PATIENT
  Age: 64 Year
  Sex: Male

DRUGS (5)
  1. ZYPREXA [Suspect]
     Indication: HALLUCINATION, AUDITORY
     Dosage: 5 MG, DAILY (1/D)
     Route: 048
     Dates: start: 20060726, end: 20060726
  2. ZYPREXA [Suspect]
     Dosage: 10 MG, DAILY (1/D)
     Route: 048
     Dates: start: 20060727, end: 20060729
  3. TEMESTA                                 /NET/ [Concomitant]
     Dosage: 3 MG, DAILY (1/D)
     Route: 048
     Dates: start: 20060726, end: 20060726
  4. TEMESTA                                 /NET/ [Concomitant]
     Dosage: 4 MG, DAILY (1/D)
     Route: 048
     Dates: start: 20060727, end: 20060804
  5. TEMESTA                                 /NET/ [Concomitant]
     Dosage: TAPERING DOWN
     Dates: start: 20060804

REACTIONS (2)
  - EYELID OEDEMA [None]
  - OEDEMA PERIPHERAL [None]
